FAERS Safety Report 17934872 (Version 2)
Quarter: 2021Q2

REPORT INFORMATION
  Report Type: Other
  Country: US (occurrence: US)
  Receive Date: 20200624
  Receipt Date: 20210629
  Transmission Date: 20210717
  Serious: Yes (Hospitalization, Other)
  Sender: FDA-Public Use
  Company Number: US-ROCHE-2606921

PATIENT
  Sex: Female

DRUGS (18)
  1. RITUXAN [Suspect]
     Active Substance: RITUXIMAB
     Route: 042
     Dates: start: 20180209
  2. RITUXAN [Suspect]
     Active Substance: RITUXIMAB
     Route: 042
     Dates: start: 20180511
  3. AMLODIPINE [Concomitant]
     Active Substance: AMLODIPINE BESYLATE
  4. SOLU?MEDROL [Concomitant]
     Active Substance: METHYLPREDNISOLONE SODIUM SUCCINATE
     Route: 042
  5. METHOTREXATE. [Concomitant]
     Active Substance: METHOTREXATE
  6. TRIAMCINOLONE ACETONIDE. [Concomitant]
     Active Substance: TRIAMCINOLONE ACETONIDE
  7. TYLENOL [Concomitant]
     Active Substance: ACETAMINOPHEN
     Route: 048
  8. RITUXAN [Suspect]
     Active Substance: RITUXIMAB
     Route: 042
     Dates: start: 20180809
  9. SUMATRIPTAN. [Concomitant]
     Active Substance: SUMATRIPTAN
  10. GABAPENTINE [Concomitant]
     Active Substance: GABAPENTIN
     Dosage: TAKE 2 CAP. 3 TIMES A DAY
  11. RITUXAN [Suspect]
     Active Substance: RITUXIMAB
     Indication: MULTIPLE SCLEROSIS
     Dosage: EVERY 3 MONTHS
     Route: 042
     Dates: start: 201506
  12. METHYLPREDNISOLONE. [Concomitant]
     Active Substance: METHYLPREDNISOLONE
  13. LEVOTHYROXINE. [Concomitant]
     Active Substance: LEVOTHYROXINE
  14. BACLOFEN. [Concomitant]
     Active Substance: BACLOFEN
  15. LORATADINE;PARACETAMOL;PHENYLEPHRINE HYDROCHLORIDE [Concomitant]
  16. WARFARIN [Concomitant]
     Active Substance: WARFARIN
  17. FOLIC ACID. [Concomitant]
     Active Substance: FOLIC ACID
  18. FLUTICASONE. [Concomitant]
     Active Substance: FLUTICASONE
     Dosage: SPRAY 1 PUFF INTO EACH NOSTRIL 1 TIME PER DAY

REACTIONS (13)
  - Deafness [Unknown]
  - Dizziness [Unknown]
  - Headache [Unknown]
  - Asthenia [Unknown]
  - Nervousness [Unknown]
  - Herpes zoster [Recovered/Resolved]
  - Off label use [Unknown]
  - Contusion [Unknown]
  - Pain in extremity [Unknown]
  - Appetite disorder [Unknown]
  - Fatigue [Unknown]
  - Gait disturbance [Unknown]
  - Hypoaesthesia [Unknown]
